FAERS Safety Report 24082388 (Version 3)
Quarter: 2024Q3

REPORT INFORMATION
  Report Type: Spontaneous
  Country: US (occurrence: US)
  Receive Date: 20240712
  Receipt Date: 20240824
  Transmission Date: 20241017
  Serious: No
  Sender: ABBVIE
  Company Number: US-ABBVIE-5832570

PATIENT
  Sex: Female

DRUGS (2)
  1. UPADACITINIB [Suspect]
     Active Substance: UPADACITINIB
     Indication: Product used for unknown indication
     Dosage: STRENGTH: 30 MG
     Route: 048
     Dates: start: 202310
  2. PREDNISONE [Suspect]
     Active Substance: PREDNISONE
     Indication: Product used for unknown indication
     Route: 065

REACTIONS (8)
  - Anxiety [Unknown]
  - Inflammation [Recovering/Resolving]
  - Weight increased [Unknown]
  - Acne [Unknown]
  - Irritability [Unknown]
  - Blood triglycerides increased [Unknown]
  - Vitamin D decreased [Unknown]
  - Blood iron decreased [Unknown]
